FAERS Safety Report 4309184-7 (Version None)
Quarter: 2004Q1

REPORT INFORMATION
  Report Type: 
  Country: None (occurrence: None)
  Receive Date: 20040227
  Receipt Date: 20040218
  Transmission Date: 20041129
  Serious: Yes (Other)
  Sender: FDA-Public Use
  Company Number: 2004007867

PATIENT
  Age: 59 Year
  Sex: Male

DRUGS (5)
  1. NORVASC [Suspect]
     Indication: ILL-DEFINED DISORDER
     Dosage: 5 MG, ORAL
     Route: 048
     Dates: start: 20031016
  2. ZALTOPROFEN (ZALTOPROFEN) [Suspect]
     Indication: ILL-DEFINED DISORDER
     Dosage: ORAL
     Route: 048
  3. CIMETIDINE [Concomitant]
  4. WARFARIN SODIUM [Concomitant]
  5. CHARCOAL, ACTIVATED (CHARCOAL, ACTIVATED) [Concomitant]

REACTIONS (1)
  - HEPATIC FUNCTION ABNORMAL [None]
